FAERS Safety Report 21744659 (Version 1)
Quarter: 2022Q4

REPORT INFORMATION
  Report Type: Spontaneous
  Country: US (occurrence: US)
  Receive Date: 20221218
  Receipt Date: 20221218
  Transmission Date: 20230112
  Serious: No
  Sender: FDA-Public Use
  Company Number: US-ORGANON-O2211USA002250

PATIENT
  Age: 37 Year
  Sex: Male

DRUGS (3)
  1. ELOCON [Suspect]
     Active Substance: MOMETASONE FUROATE
     Indication: Dermatitis contact
     Dosage: UNK
  2. DESONIDE [Suspect]
     Active Substance: DESONIDE
     Indication: Dermatitis contact
     Dosage: UNK
  3. DUPILUMAB [Suspect]
     Active Substance: DUPILUMAB
     Indication: Dermatitis contact
     Dosage: 300 MILLIGRAM, QOW(EVERY OTHER WEEK) FOR 11 MONTHS
     Route: 058

REACTIONS (1)
  - Therapeutic product effect incomplete [Unknown]
